FAERS Safety Report 5312974-5 (Version None)
Quarter: 2007Q2

REPORT INFORMATION
  Report Type: 
  Country: None (occurrence: None)
  Receive Date: 20070430
  Receipt Date: 20070425
  Transmission Date: 20071010
  Serious: Yes (Other)
  Sender: FDA-Public Use
  Company Number: GB-MERCK-0704USA05961

PATIENT
  Sex: Male

DRUGS (4)
  1. PRINIVIL [Suspect]
     Indication: HYPERTENSION
     Route: 048
  2. ACTRAPID [Concomitant]
     Indication: DIABETES MELLITUS
     Route: 065
  3. INSULIN [Concomitant]
     Indication: DIABETES MELLITUS
     Route: 065
  4. SIMVASTATIN [Concomitant]
     Indication: HYPERCHOLESTEROLAEMIA
     Route: 065

REACTIONS (2)
  - MOOD ALTERED [None]
  - PARANOIA [None]
